FAERS Safety Report 12382017 (Version 1)
Quarter: 2016Q2

REPORT INFORMATION
  Report Type: Spontaneous
  Country: US (occurrence: None)
  Receive Date: 20160517
  Receipt Date: 20160517
  Transmission Date: 20160815
  Serious: No
  Sender: FDA-Public Use
  Company Number: None

PATIENT

DRUGS (1)
  1. DOPAMINE [Suspect]
     Active Substance: DOPAMINE\DOPAMINE HYDROCHLORIDE
     Route: 041

REACTIONS (4)
  - Product packaging issue [None]
  - Product expiration date issue [None]
  - Product label issue [None]
  - Product lot number issue [None]

NARRATIVE: CASE EVENT DATE: 20160516
